FAERS Safety Report 4708444-5 (Version None)
Quarter: 2005Q3

REPORT INFORMATION
  Report Type: 
  Country: None (occurrence: None)
  Receive Date: 20050707
  Receipt Date: 20050405
  Transmission Date: 20060218
  Serious: Yes (Hospitalization, Other)
  Sender: FDA-Public Use
  Company Number: AU-BRISTOL-MYERS SQUIBB COMPANY-12921052

PATIENT
  Age: 69 Year
  Sex: Female

DRUGS (8)
  1. CETUXIMAB [Suspect]
     Indication: COLORECTAL CANCER METASTATIC
     Dosage: 1ST CETUXIMAB INFUSION ADMINISTERED ON 30-MAR-2005 (800MG).
     Route: 042
     Dates: start: 20050420, end: 20050420
  2. IRINOTECAN HCL [Suspect]
     Indication: COLORECTAL CANCER METASTATIC
     Dosage: 1ST AND MOST RECENT IRINOTECAN INFUSION ADMINISTERED ON 30-MAR-2005.
     Route: 042
     Dates: start: 20050330, end: 20050330
  3. MONOPRIL [Concomitant]
     Dates: start: 19800101
  4. ANPEC [Concomitant]
     Dates: start: 19800101
  5. ZOCOR [Concomitant]
     Dates: start: 20040901
  6. PROTOPHAN [Concomitant]
     Dates: start: 19800101
  7. NOVORAPID [Concomitant]
     Dates: start: 19800101
  8. TRAMADOL [Concomitant]
     Dates: start: 20041201

REACTIONS (4)
  - CHILLS [None]
  - DIARRHOEA [None]
  - DIVERTICULITIS [None]
  - FEBRILE NEUTROPENIA [None]
